FAERS Safety Report 13891632 (Version 2)
Quarter: 2018Q1

REPORT INFORMATION
  Report Type: Report from Study
  Country: BR (occurrence: BR)
  Receive Date: 20170822
  Receipt Date: 20180209
  Transmission Date: 20180508
  Serious: Yes (Death, Hospitalization, Other)
  Sender: FDA-Public Use
  Company Number: PHHY2017BR123357

PATIENT
  Age: 85 Year
  Sex: Female
  Weight: 42 kg

DRUGS (3)
  1. EXELON PATCH [Suspect]
     Active Substance: RIVASTIGMINE
     Indication: PARKINSON^S DISEASE
     Dosage: 9.5 MG, QD PATCH 10 (CM2)
     Route: 062
     Dates: start: 2012
  2. EXELON PATCH [Suspect]
     Active Substance: RIVASTIGMINE
     Indication: PROPHYLAXIS
  3. EXELON PATCH [Suspect]
     Active Substance: RIVASTIGMINE
     Indication: AMNESIA

REACTIONS (8)
  - Weight decreased [Fatal]
  - Diarrhoea haemorrhagic [Fatal]
  - Urinary tract infection [Fatal]
  - Pneumonia [Fatal]
  - Neoplasm malignant [Fatal]
  - Parkinson^s disease [Fatal]
  - Sepsis [Fatal]
  - Urethral obstruction [Unknown]

NARRATIVE: CASE EVENT DATE: 20160613
